FAERS Safety Report 4444410-5 (Version None)
Quarter: 2004Q3

REPORT INFORMATION
  Report Type: 
  Country: None (occurrence: None)
  Receive Date: 20040902
  Receipt Date: 20040817
  Transmission Date: 20050211
  Serious: Yes (Hospitalization)
  Sender: FDA-Public Use
  Company Number: 203204

PATIENT
  Age: 45 Year
  Sex: Male
  Weight: 150.5942 kg

DRUGS (1)
  1. AVONEX [Suspect]
     Indication: MULTIPLE SCLEROSIS
     Dosage: 30 MCG QW IM
     Route: 030
     Dates: start: 20040601

REACTIONS (7)
  - ABDOMINAL DISTENSION [None]
  - FACE OEDEMA [None]
  - OEDEMA PERIPHERAL [None]
  - PNEUMONIA [None]
  - SMALL INTESTINAL OBSTRUCTION [None]
  - URINARY RETENTION [None]
  - WEIGHT INCREASED [None]
